FAERS Safety Report 6836272-3 (Version None)
Quarter: 2010Q3

REPORT INFORMATION
  Report Type: 
  Country: None (occurrence: None)
  Receive Date: 20100713
  Receipt Date: 20091124
  Transmission Date: 20110219
  Serious: No
  Sender: FDA-Public Use
  Company Number: US-TYCO HEALTHCARE/MALLINCKRODT-T200902265

PATIENT
  Weight: 108.84 kg

DRUGS (1)
  1. OXYCODONE HCL [Suspect]
     Indication: PAIN
     Dosage: 2 Q6 HOURS
     Route: 048

REACTIONS (3)
  - DRUG EFFECT DECREASED [None]
  - DYSPEPSIA [None]
  - INTENTIONAL DRUG MISUSE [None]
